FAERS Safety Report 9200259 (Version 1)
Quarter: 2013Q1

REPORT INFORMATION
  Report Type: Spontaneous
  Country: GB (occurrence: GB)
  Receive Date: 20130329
  Receipt Date: 20130329
  Transmission Date: 20140127
  Serious: Yes (Hospitalization, Other)
  Sender: FDA-Public Use
  Company Number: GB-PFIZER INC-HQ9879015AUG2000

PATIENT
  Age: 28 Year
  Sex: Male
  Weight: 80 kg

DRUGS (2)
  1. MOTRIN [Suspect]
     Indication: ARTHRALGIA
     Dosage: 1200-1600 MG/D
     Route: 048
     Dates: start: 20000701, end: 20000704
  2. KAPAKE [Concomitant]
     Indication: ARTHRALGIA
     Dosage: 6-8 TABS/D, PO
     Dates: start: 20000701, end: 20000704

REACTIONS (2)
  - Tubulointerstitial nephritis [Recovered/Resolved]
  - Renal failure acute [Recovered/Resolved]
